FAERS Safety Report 6508653-9 (Version None)
Quarter: 2009Q4

REPORT INFORMATION
  Report Type: 
  Country: None (occurrence: None)
  Receive Date: 20091221
  Receipt Date: 20090805
  Transmission Date: 20100525
  Serious: No
  Sender: FDA-Public Use
  Company Number: US-ASTRAZENECA-2009SE06961

PATIENT
  Age: 77 Year
  Sex: Female
  Weight: 77.1 kg

DRUGS (6)
  1. CRESTOR [Suspect]
     Indication: BLOOD CHOLESTEROL
     Route: 048
  2. ALTACE [Concomitant]
     Indication: HYPERTENSION
  3. COREG [Concomitant]
     Indication: HYPERTENSION
  4. HYDROCHLORT [Concomitant]
     Indication: HYPERTENSION
  5. LASIX [Concomitant]
     Indication: DIURETIC THERAPY
  6. PLAVIX [Concomitant]
     Indication: ANTICOAGULANT THERAPY

REACTIONS (2)
  - ASTHENIA [None]
  - TENDERNESS [None]
